FAERS Safety Report 9242689 (Version 2)
Quarter: 2013Q2

REPORT INFORMATION
  Report Type: Spontaneous
  Country: DE (occurrence: DE)
  Receive Date: 20130419
  Receipt Date: 20130517
  Transmission Date: 20140414
  Serious: Yes (Hospitalization)
  Sender: FDA-Public Use
  Company Number: DE-GLAXOSMITHKLINE-D0079493A

PATIENT
  Sex: Female
  Weight: 79 kg

DRUGS (2)
  1. IMIGRAN [Suspect]
     Indication: MIGRAINE
     Dosage: 50MG AS REQUIRED
     Route: 048
  2. METOPROLOL SUCCINAT [Concomitant]
     Indication: MIGRAINE
     Dosage: 47.5MG UNKNOWN
     Route: 048
     Dates: start: 201209

REACTIONS (1)
  - Atrial fibrillation [Recovered/Resolved]
